FAERS Safety Report 10734832 (Version 3)
Quarter: 2015Q1

REPORT INFORMATION
  Report Type: Report from Study
  Country: US (occurrence: US)
  Receive Date: 20150123
  Receipt Date: 20150206
  Transmission Date: 20150721
  Serious: Yes (Hospitalization)
  Sender: FDA-Public Use
  Company Number: US-AMGEN INC.-USASL2015001612

PATIENT
  Age: 53 Year
  Sex: Female

DRUGS (1)
  1. KYPROLIS [Suspect]
     Active Substance: CARFILZOMIB
     Indication: PLASMA CELL MYELOMA
     Route: 065

REACTIONS (12)
  - Hospitalisation [Unknown]
  - Restlessness [Unknown]
  - Pollakiuria [Unknown]
  - Alopecia [Unknown]
  - Vision blurred [Unknown]
  - Night sweats [Unknown]
  - Ear discomfort [Unknown]
  - Lip swelling [Unknown]
  - Lip dry [Unknown]
  - Eye pruritus [Unknown]
  - Insomnia [Unknown]
  - Oral discomfort [Unknown]

NARRATIVE: CASE EVENT DATE: 20150126
